FAERS Safety Report 18673412 (Version 1)
Quarter: 2020Q4

REPORT INFORMATION
  Report Type: Spontaneous
  Country: US (occurrence: US)
  Receive Date: 20201228
  Receipt Date: 20201228
  Transmission Date: 20210114
  Serious: Yes (Other)
  Sender: FDA-Public Use
  Company Number: US-ROCSKIN-2020-US-025370

PATIENT
  Sex: Female

DRUGS (1)
  1. ROC MULTI CORREXION 5 IN 1 DAILY MOISTURIZER SUNSCREEN BROAD SPECTRUM SPF30 [Suspect]
     Active Substance: AVOBENZONE\HOMOSALATE\OCTISALATE\OCTOCRYLENE
     Indication: THERAPEUTIC SKIN CARE TOPICAL
     Route: 061

REACTIONS (2)
  - Application site swelling [Unknown]
  - Application site rash [Unknown]
